FAERS Safety Report 24369829 (Version 1)
Quarter: 2024Q3

REPORT INFORMATION
  Report Type: Spontaneous
  Country: FR (occurrence: FR)
  Receive Date: 20240927
  Receipt Date: 20240927
  Transmission Date: 20241017
  Serious: Yes (Death, Other)
  Sender: CELLTRION
  Company Number: None

PATIENT

DRUGS (2)
  1. INFLIXIMAB [Suspect]
     Active Substance: INFLIXIMAB
     Indication: Crohn^s disease
     Dosage: 400 MG, 1 CYCLE
     Route: 042
     Dates: start: 20230504, end: 20230504
  2. METHOTREXATE [Suspect]
     Active Substance: METHOTREXATE
     Indication: Crohn^s disease
     Dosage: 15 MG, 1 CYCLE
     Route: 048
     Dates: start: 20230512, end: 20230512

REACTIONS (4)
  - Septic shock [Fatal]
  - Leukopenia [Fatal]
  - Thrombocytopenia [Fatal]
  - Overdose [Unknown]

NARRATIVE: CASE EVENT DATE: 20230515
